FAERS Safety Report 4640708-6 (Version None)
Quarter: 2005Q2

REPORT INFORMATION
  Report Type: 
  Country: None (occurrence: None)
  Receive Date: 20050419
  Receipt Date: 20050404
  Transmission Date: 20051028
  Serious: Yes (Hospitalization)
  Sender: FDA-Public Use
  Company Number: 6013984

PATIENT
  Age: 53 Year
  Sex: Male

DRUGS (5)
  1. LEVOTHYROXINE SODIUM [Suspect]
     Dosage: 75 MCG (75MCG, 1 D), ORAL
     Route: 048
  2. ATORVASTATIN CALCIUM [Suspect]
     Dosage: 40 MG (40 MG, 1 D), ORAL
     Route: 048
     Dates: end: 20050316
  3. FUROSEMIDE [Suspect]
     Dosage: 125 MG (125 MG, 1 D), ORAL
     Route: 048
     Dates: end: 20050316
  4. RAMIPRIL [Suspect]
     Dosage: 5MG (5 MG, 1 D), ORAL
     Route: 048
  5. HYZAAR [Suspect]
     Dosage: 50 MG (50 MG, 1 D), ORAL
     Route: 048

REACTIONS (3)
  - ACNE [None]
  - NEPHROTIC SYNDROME [None]
  - PRURITUS [None]
